FAERS Safety Report 8408339-X (Version None)
Quarter: 2012Q2

REPORT INFORMATION
  Report Type: 
  Country: None (occurrence: None)
  Receive Date: 20120531
  Receipt Date: 20120531
  Transmission Date: 20120825
  Serious: No
  Sender: FDA-Public Use
  Company Number: None

PATIENT
  Age: 61 Year
  Sex: Female
  Weight: 63.5036 kg

DRUGS (2)
  1. SUMAVEL DOSEPRO [Suspect]
     Indication: VOMITING
     Dosage: 6 MG IN .5 ML SOLUTION 1 TIME NEEDLE - FREE INJECTION
     Dates: start: 20120103
  2. SUMAVEL DOSEPRO [Suspect]
     Indication: MIGRAINE
     Dosage: 6 MG IN .5 ML SOLUTION 1 TIME NEEDLE - FREE INJECTION
     Dates: start: 20120103

REACTIONS (2)
  - HAEMORRHAGE [None]
  - CONTUSION [None]
